FAERS Safety Report 4457735-4 (Version None)
Quarter: 2004Q3

REPORT INFORMATION
  Report Type: 
  Country: None (occurrence: None)
  Receive Date: 20040831
  Receipt Date: 20040719
  Transmission Date: 20050211
  Serious: No
  Sender: FDA-Public Use
  Company Number: FABR-10711

PATIENT
  Sex: Male
  Weight: 57.6068 kg

DRUGS (1)
  1. FABRAZYME [Suspect]
     Indication: FABRY'S DISEASE
     Dosage: 1 MG IV
     Route: 042

REACTIONS (1)
  - INFUSION RELATED REACTION [None]
